FAERS Safety Report 7717827-0 (Version None)
Quarter: 2011Q3

REPORT INFORMATION
  Report Type: 
  Country: None (occurrence: None)
  Receive Date: 20110824
  Receipt Date: 20110815
  Transmission Date: 20111222
  Serious: Yes (Other)
  Sender: FDA-Public Use
  Company Number: 2011SP038678

PATIENT
  Sex: Male

DRUGS (3)
  1. PEG-INTRON [Suspect]
     Indication: HEPATITIS C
     Dates: start: 20110607
  2. RIBAVIRIN [Suspect]
     Indication: HEPATITIS C
     Dates: start: 20110607
  3. TELAPREVIR [Suspect]
     Indication: HEPATITIS C
     Dates: start: 20110607

REACTIONS (16)
  - SWELLING [None]
  - FALL [None]
  - DIZZINESS [None]
  - PRURITUS [None]
  - MUSCLE SPASMS [None]
  - HYPERHIDROSIS [None]
  - INFLUENZA LIKE ILLNESS [None]
  - PAIN [None]
  - BLOOD GLUCOSE INCREASED [None]
  - INJECTION SITE RASH [None]
  - BALANCE DISORDER [None]
  - HEPATIC PAIN [None]
  - ALOPECIA [None]
  - VOMITING [None]
  - GAIT DISTURBANCE [None]
  - DRUG ABUSE [None]
